FAERS Safety Report 5143481-0 (Version None)
Quarter: 2006Q4

REPORT INFORMATION
  Report Type: 
  Country: None (occurrence: None)
  Receive Date: 20061103
  Receipt Date: 20060208
  Transmission Date: 20070319
  Serious: Yes (Other)
  Sender: FDA-Public Use
  Company Number: JP-JPN-A200600528

PATIENT
  Age: 25 Year
  Sex: Female

DRUGS (5)
  1. PAXIL [Suspect]
     Indication: ANXIETY
     Dosage: 10MG PER DAY
     Route: 048
     Dates: start: 20060120
  2. DEPAS [Concomitant]
     Indication: ANXIETY
     Dosage: .5MG PER DAY
     Route: 048
     Dates: start: 20060120
  3. UTEMERIN [Concomitant]
     Dosage: 15MG PER DAY
     Route: 048
     Dates: start: 20051205, end: 20060205
  4. UTEMERIN [Concomitant]
     Route: 042
     Dates: start: 20060102, end: 20060129
  5. INDUCTION OF ANAESTHESIA [Concomitant]

REACTIONS (5)
  - DRUG EXPOSURE DURING PREGNANCY [None]
  - DRUG WITHDRAWAL SYNDROME [None]
  - DYSSTASIA [None]
  - NORMAL DELIVERY [None]
  - QUADRIPLEGIA [None]
